FAERS Safety Report 12393647 (Version 1)
Quarter: 2016Q2

REPORT INFORMATION
  Report Type: Spontaneous
  Country: IT (occurrence: IT)
  Receive Date: 20160523
  Receipt Date: 20160523
  Transmission Date: 20160815
  Serious: Yes (Other)
  Sender: FDA-Public Use
  Company Number: IT-SA-2016SA096059

PATIENT
  Age: 38 Year
  Sex: Female
  Weight: 43 kg

DRUGS (10)
  1. MYCOBUTIN [Suspect]
     Active Substance: RIFABUTIN
     Indication: DISSEMINATED TUBERCULOSIS
     Route: 048
     Dates: start: 20060414, end: 20070119
  2. KALETRA [Concomitant]
     Active Substance: LOPINAVIR\RITONAVIR
     Indication: ANTIRETROVIRAL THERAPY
     Dosage: 1 UNIT DOSAGE?200 MG + 50 MG FILM COATED TABLETS DOSE:1 UNIT(S)
     Route: 048
     Dates: start: 20060414
  3. VIREAD [Concomitant]
     Active Substance: TENOFOVIR DISOPROXIL FUMARATE
     Indication: ANTIRETROVIRAL THERAPY
     Dosage: 245 MG FILM COATED TABLET IN VIAL ORAL USE
     Route: 048
     Dates: start: 20060414
  4. RIFADIN [Suspect]
     Active Substance: RIFAMPIN
     Indication: DISSEMINATED TUBERCULOSIS
     Route: 048
     Dates: start: 20060327, end: 20060414
  5. ETAPIAM [Suspect]
     Active Substance: ETHAMBUTOL HYDROCHLORIDE
     Indication: DISSEMINATED TUBERCULOSIS
     Route: 048
     Dates: start: 20060327, end: 20070119
  6. POTASSION [Concomitant]
     Active Substance: POTASSIUM CHLORIDE
     Dosage: 2 UNIT DOSAGE DOSE:2 UNIT(S)
     Route: 065
     Dates: start: 20060526
  7. PIRALDINA [Suspect]
     Active Substance: PYRAZINAMIDE
     Indication: DISSEMINATED TUBERCULOSIS
     Route: 048
     Dates: start: 20060327, end: 20070119
  8. GRANULOKINE [Concomitant]
     Active Substance: FILGRASTIM
     Indication: NEUTROPENIA
     Dosage: 30 MU (0.3 MG/ML) SOLUTION FOR INJECTION 1 VIAL OF 1 ML DOSE:3 UNIT(S)
     Route: 058
     Dates: start: 20060525, end: 20060625
  9. FOLINA [Concomitant]
     Active Substance: FOLIC ACID
     Dosage: DOSE:1 UNIT(S)
     Route: 065
     Dates: start: 20060526
  10. EMTRIVA [Concomitant]
     Active Substance: EMTRICITABINE
     Indication: ANTIRETROVIRAL THERAPY
     Dosage: HARD CAPSULE IN VIAL OF 200 MG
     Route: 048
     Dates: start: 20060414

REACTIONS (3)
  - Burning sensation [Recovering/Resolving]
  - Pain [Recovering/Resolving]
  - Neuropathy peripheral [Recovering/Resolving]

NARRATIVE: CASE EVENT DATE: 20060707
